FAERS Safety Report 23993081 (Version 1)
Quarter: 2024Q2

REPORT INFORMATION
  Report Type: Spontaneous
  Country: US (occurrence: US)
  Receive Date: 20240620
  Receipt Date: 20240620
  Transmission Date: 20240717
  Serious: Yes (Hospitalization)
  Sender: FDA-Public Use
  Company Number: US-SA-SAC20240614000683

PATIENT
  Age: 68 Year
  Sex: Male
  Weight: 55.7 kg

DRUGS (1)
  1. CAPRELSA [Suspect]
     Active Substance: VANDETANIB
     Indication: Thyroid cancer
     Dosage: 300 MG, QD
     Route: 048
     Dates: start: 20161027

REACTIONS (3)
  - Gait disturbance [Unknown]
  - Fall [Unknown]
  - Rib fracture [Unknown]
